FAERS Safety Report 13755182 (Version 1)
Quarter: 2017Q3

REPORT INFORMATION
  Report Type: Report from Study
  Country: US (occurrence: US)
  Receive Date: 20170714
  Receipt Date: 20170714
  Transmission Date: 20171127
  Serious: Yes (Hospitalization, Other)
  Sender: FDA-Public Use
  Company Number: US-ASTRAZENECA-2015SE14123

PATIENT
  Age: 878 Month
  Sex: Female
  Weight: 56.2 kg

DRUGS (33)
  1. TRAMADOL. [Concomitant]
     Active Substance: TRAMADOL
     Indication: NECK PAIN
     Route: 048
  2. SYMBICORT [Suspect]
     Active Substance: BUDESONIDE\FORMOTEROL FUMARATE DIHYDRATE
     Indication: CHRONIC OBSTRUCTIVE PULMONARY DISEASE
     Dosage: 160 /4.5MCG 2 PUFFS TWO TIMES A DAY 90 DAYS
     Route: 055
  3. OSCAL [Concomitant]
     Active Substance: CALCIUM CARBONATE
     Indication: LACTOSE INTOLERANCE
     Route: 048
  4. PROAIR HFA [Concomitant]
     Active Substance: ALBUTEROL SULFATE
     Indication: CHRONIC OBSTRUCTIVE PULMONARY DISEASE
     Route: 055
  5. DILTIAZEM CD [Concomitant]
     Active Substance: DILTIAZEM
     Indication: CARDIAC DISORDER
  6. GABAPENTIN. [Concomitant]
     Active Substance: GABAPENTIN
     Indication: MUSCULOSKELETAL PAIN
     Route: 048
  7. GABAPENTIN. [Concomitant]
     Active Substance: GABAPENTIN
     Indication: LIMB DISCOMFORT
     Route: 048
  8. DUONEB [Concomitant]
     Active Substance: ALBUTEROL SULFATE\IPRATROPIUM BROMIDE
     Dosage: 1 UNIT(S),EVERY^ 6 HOURS AS NEEDED
  9. CALCIUM [Concomitant]
     Active Substance: CALCIUM
  10. SYMBICORT [Suspect]
     Active Substance: BUDESONIDE\FORMOTEROL FUMARATE DIHYDRATE
     Indication: EMPHYSEMA
     Dosage: 160 /4.5MCG 2 PUFFS TWO TIMES A DAY 90 DAYS
     Route: 055
  11. TUDORZA PRESSAIR [Suspect]
     Active Substance: ACLIDINIUM BROMIDE
     Route: 055
  12. TRAMADOL. [Concomitant]
     Active Substance: TRAMADOL
     Indication: HEADACHE
     Route: 048
  13. SUCRALFATE. [Concomitant]
     Active Substance: SUCRALFATE
     Indication: ABDOMINAL DISCOMFORT
     Dosage: 1GM, 1 TABLET, ON EMPTY STOMACH BEFORRE MEALS.
  14. SOTALOL. [Concomitant]
     Active Substance: SOTALOL
     Indication: BLOOD PRESSURE ABNORMAL
  15. TRAMADOL. [Concomitant]
     Active Substance: TRAMADOL
     Indication: BACK PAIN
     Route: 048
  16. PROAIR HFA [Concomitant]
     Active Substance: ALBUTEROL SULFATE
     Indication: WHEEZING
     Dosage: EVERY 6 HOURS AS NEEDED
     Route: 055
  17. CALCIUM [Concomitant]
     Active Substance: CALCIUM
     Dosage: 1 TABLET TWICW DAILY.
  18. DICYCLOMINE HCL [Concomitant]
     Active Substance: DICYCLOMINE HYDROCHLORIDE
     Dosage: ONE CAP BY MOUTH 4TIMES
     Route: 048
  19. ELIQUIS [Concomitant]
     Active Substance: APIXABAN
     Indication: ATRIAL FIBRILLATION
     Route: 048
  20. OSCAL [Concomitant]
     Active Substance: CALCIUM CARBONATE
     Indication: MINERAL SUPPLEMENTATION
     Route: 048
  21. MULTIVITAMINS [Concomitant]
     Active Substance: VITAMINS
     Indication: ROUTINE HEALTH MAINTENANCE
     Dosage: ONE TABLET A DAY
     Route: 048
  22. VOLTAREN [Concomitant]
     Active Substance: DICLOFENAC SODIUM
     Dosage: FOUR TIMES A DAY
  23. GABAPENTIN. [Concomitant]
     Active Substance: GABAPENTIN
  24. ASPIRIN. [Concomitant]
     Active Substance: ASPIRIN
     Route: 048
  25. TEMAZEPAM. [Concomitant]
     Active Substance: TEMAZEPAM
     Dosage: 1 CAPSULE AT BEDTIME  AS NEEDED ONCE A DAY
  26. CYMBALTA [Concomitant]
     Active Substance: DULOXETINE HYDROCHLORIDE
  27. GABAPENTIN. [Concomitant]
     Active Substance: GABAPENTIN
     Indication: NEUROPATHY PERIPHERAL
     Route: 048
  28. ALBUTEROL. [Concomitant]
     Active Substance: ALBUTEROL
  29. PROAIR HFA [Concomitant]
     Active Substance: ALBUTEROL SULFATE
     Indication: CHRONIC OBSTRUCTIVE PULMONARY DISEASE
     Dosage: EVERY 6 HOURS AS NEEDED
     Route: 055
  30. PROAIR HFA [Concomitant]
     Active Substance: ALBUTEROL SULFATE
     Indication: CHRONIC OBSTRUCTIVE PULMONARY DISEASE
     Dosage: 1 VIAL, EVERY 6 HOURS OR AS NEEDED
  31. PROAIR HFA [Concomitant]
     Active Substance: ALBUTEROL SULFATE
     Indication: WHEEZING
     Dosage: 1 VIAL, EVERY 6 HOURS OR AS NEEDED
  32. PROAIR HFA [Concomitant]
     Active Substance: ALBUTEROL SULFATE
     Indication: WHEEZING
     Route: 055
  33. BENEFIBER [Concomitant]
     Active Substance: STARCH, WHEAT
     Indication: DIARRHOEA
     Dosage: TID
     Route: 048
     Dates: start: 201601

REACTIONS (26)
  - Joint dislocation [Unknown]
  - Fall [Unknown]
  - Syncope [Unknown]
  - Drug dose omission [Unknown]
  - Pneumonia [Unknown]
  - Intercepted medication error [Unknown]
  - Asthenia [Unknown]
  - Intentional product misuse [Unknown]
  - Blood pressure increased [Unknown]
  - Atrial fibrillation [Unknown]
  - Dyspnoea [Not Recovered/Not Resolved]
  - Balance disorder [Unknown]
  - Memory impairment [Unknown]
  - Weight decreased [Unknown]
  - Urinary tract infection [Unknown]
  - Wheezing [Unknown]
  - Fractured skull depressed [Unknown]
  - Contusion [Unknown]
  - Diarrhoea [Unknown]
  - Dehydration [Unknown]
  - Vomiting [Unknown]
  - Pain [Unknown]
  - Fungal infection [Unknown]
  - Nausea [Unknown]
  - Feeling abnormal [Unknown]
  - Influenza [Unknown]

NARRATIVE: CASE EVENT DATE: 201505
